FAERS Safety Report 19709517 (Version 1)
Quarter: 2021Q3

REPORT INFORMATION
  Report Type: Report from Study
  Country: DE (occurrence: DE)
  Receive Date: 20210816
  Receipt Date: 20210816
  Transmission Date: 20211014
  Serious: Yes (Other)
  Sender: FDA-Public Use
  Company Number: DE-AMGEN-DEUSL2021123841

PATIENT
  Age: 57 Year
  Sex: Female

DRUGS (1)
  1. AMGEVITA [Suspect]
     Active Substance: ADALIMUMAB
     Indication: HIDRADENITIS
     Dosage: UNK, QWK
     Route: 065
     Dates: end: 202107

REACTIONS (13)
  - Lipoedema [Unknown]
  - Chest discomfort [Unknown]
  - Abdominal pain lower [Unknown]
  - Visual impairment [Unknown]
  - Back pain [Unknown]
  - Skin irritation [Unknown]
  - Dizziness [Unknown]
  - Gastrooesophageal reflux disease [Unknown]
  - Peripheral swelling [Unknown]
  - Disturbance in attention [Unknown]
  - Oesophageal candidiasis [Unknown]
  - Myalgia [Unknown]
  - Fatigue [Unknown]
